FAERS Safety Report 14895268 (Version 1)
Quarter: 2018Q2

REPORT INFORMATION
  Report Type: Spontaneous
  Country: FR (occurrence: FR)
  Receive Date: 20180515
  Receipt Date: 20180515
  Transmission Date: 20180711
  Serious: Yes (Other)
  Sender: FDA-Public Use
  Company Number: FR-MERCK KGAA-2047740

PATIENT
  Age: 61 Year
  Sex: Female

DRUGS (1)
  1. NOVOTHYROX [Suspect]
     Active Substance: LEVOTHYROXINE SODIUM
     Indication: POST PROCEDURAL HYPOTHYROIDISM
     Dates: start: 20170416

REACTIONS (23)
  - Gait disturbance [None]
  - Osteoarthritis [None]
  - Fatigue [None]
  - Musculoskeletal pain [None]
  - Visual impairment [None]
  - Oedema [None]
  - Aggression [None]
  - Impaired driving ability [None]
  - Tachyarrhythmia [None]
  - Insomnia [None]
  - Blood thyroid stimulating hormone increased [None]
  - Arthralgia [None]
  - Back pain [None]
  - Arthritis [None]
  - Depression [None]
  - Muscular weakness [None]
  - Muscle spasms [None]
  - Vertigo [None]
  - Blood creatinine increased [None]
  - Loss of personal independence in daily activities [None]
  - Periarthritis [None]
  - Atrial fibrillation [None]
  - Lipase increased [None]

NARRATIVE: CASE EVENT DATE: 201704
